FAERS Safety Report 21119322 (Version 6)
Quarter: 2023Q2

REPORT INFORMATION
  Report Type: Report from Study
  Country: US (occurrence: US)
  Receive Date: 20220722
  Receipt Date: 20230613
  Transmission Date: 20230722
  Serious: Yes (Other)
  Sender: FDA-Public Use
  Company Number: US-ARGENX-2022-ARGX-US000431

PATIENT
  Age: 64 Year
  Sex: Male
  Weight: 108 kg

DRUGS (3)
  1. VYVGART [Suspect]
     Active Substance: EFGARTIGIMOD ALFA-FCAB
     Indication: Myasthenia gravis
     Dosage: UNK
     Route: 042
     Dates: start: 20220314, end: 202208
  2. VYVGART [Suspect]
     Active Substance: EFGARTIGIMOD ALFA-FCAB
     Dosage: UNK
     Route: 042
     Dates: start: 20220321
  3. VYVGART [Suspect]
     Active Substance: EFGARTIGIMOD ALFA-FCAB
     Dosage: UNK
     Route: 042
     Dates: start: 20220404

REACTIONS (14)
  - Hepatic failure [Unknown]
  - Hepatic cirrhosis [Unknown]
  - Liver transplant [Unknown]
  - Upper respiratory tract infection [Unknown]
  - Muscular weakness [Recovered/Resolved]
  - Product outer packaging issue [Unknown]
  - Anaemia [Unknown]
  - Hepatic steatosis [Unknown]
  - Varices oesophageal [Unknown]
  - Weight decreased [Unknown]
  - Polyp [Unknown]
  - Therapy cessation [Unknown]
  - Urinary tract infection [Unknown]
  - Headache [Recovered/Resolved]

NARRATIVE: CASE EVENT DATE: 20220315
